FAERS Safety Report 20179546 (Version 2)
Quarter: 2022Q1

REPORT INFORMATION
  Report Type: Spontaneous
  Country: US (occurrence: US)
  Receive Date: 20211214
  Receipt Date: 20220103
  Transmission Date: 20220423
  Serious: No
  Sender: FDA-Public Use
  Company Number: US-GLAXOSMITHKLINE-US2021252816

PATIENT
  Sex: Female

DRUGS (2)
  1. ZEJULA [Suspect]
     Active Substance: NIRAPARIB
     Indication: Ovarian cancer
     Dosage: 200 MG, QD
     Dates: start: 20211125
  2. ZEJULA [Suspect]
     Active Substance: NIRAPARIB
     Dosage: 100 MG, QD

REACTIONS (10)
  - Nausea [Unknown]
  - Headache [Unknown]
  - Dysphonia [Unknown]
  - Dry mouth [Unknown]
  - Balance disorder [Unknown]
  - Condition aggravated [Unknown]
  - Stomatitis [Unknown]
  - Rash macular [Unknown]
  - Platelet count decreased [Unknown]
  - Blood test abnormal [Unknown]
